FAERS Safety Report 6182936-7 (Version None)
Quarter: 2009Q2

REPORT INFORMATION
  Report Type: 
  Country: None (occurrence: None)
  Receive Date: 20090507
  Receipt Date: 20090428
  Transmission Date: 20091009
  Serious: Yes (Hospitalization)
  Sender: FDA-Public Use
  Company Number: ES-ELI_LILLY_AND_COMPANY-ES200904006736

PATIENT
  Age: 49 Year
  Sex: Female

DRUGS (6)
  1. FORTEO [Suspect]
     Indication: OSTEOPOROSIS
     Dosage: 20 UG, DAILY (1/D)
     Route: 058
     Dates: start: 20090301, end: 20090408
  2. LEUCOVORIN CALCIUM [Concomitant]
  3. INSULIN [Concomitant]
     Indication: DIABETES MELLITUS
  4. METFORMIN HCL [Concomitant]
     Indication: DIABETES MELLITUS
  5. OMACOR [Concomitant]
  6. METOJECT [Concomitant]
     Dates: end: 20090408

REACTIONS (1)
  - FIBROMYALGIA [None]
